FAERS Safety Report 10247775 (Version 2)
Quarter: 2014Q2

REPORT INFORMATION
  Report Type: Report from Study
  Country: FR (occurrence: FR)
  Receive Date: 20140619
  Receipt Date: 20140619
  Transmission Date: 20141212
  Serious: Yes (Death, Hospitalization)
  Sender: FDA-Public Use
  Company Number: FR-VERTEX PHARMACEUTICALS INC-000000000000000751

PATIENT
  Age: 67 Year
  Sex: Female
  Weight: 94 kg

DRUGS (22)
  1. VX-950 (TELAPREVIR) [Suspect]
     Indication: HEPATITIS C
     Dosage: 375 MG, UNK
     Route: 048
     Dates: start: 20110411, end: 20110704
  2. PEGASYS [Concomitant]
     Indication: HEPATITIS C
     Dosage: 90 ?G, QW
     Dates: start: 20110620, end: 20110626
  3. PEGASYS [Concomitant]
     Dosage: 45 ?G, QW
     Dates: start: 20110627, end: 20111219
  4. COPEGUS [Concomitant]
     Indication: HEPATITIS C
     Dosage: 800 MG, QD
     Dates: start: 20110620, end: 20110623
  5. COPEGUS [Concomitant]
     Dosage: 600 MG, QD
     Dates: start: 20110624, end: 20111127
  6. COPEGUS [Concomitant]
     Dosage: 200 MG, BID
     Dates: start: 20111128, end: 20111219
  7. NEORECORMON [Concomitant]
     Indication: ANAEMIA
     Dosage: WEEKLY
     Route: 065
     Dates: start: 20110505, end: 20110720
  8. TERCIAN [Concomitant]
     Indication: ANXIETY
     Dosage: 25 MG, QW
     Route: 065
     Dates: start: 20110418, end: 20110620
  9. NOCTRAN [Concomitant]
     Indication: INSOMNIA
     Dosage: 10 MG, QW
     Route: 065
     Dates: start: 20110418
  10. DIPROSONE [Concomitant]
     Indication: RASH
     Dosage: 1 DF, QD
     Route: 065
     Dates: start: 20110418
  11. DIPROSONE [Concomitant]
     Indication: PRURITUS
     Dosage: 1 DF, UNK
     Dates: start: 20110418
  12. DIPROSONE [Concomitant]
     Dosage: UNK, QD
  13. AERIUS [Concomitant]
     Indication: RASH
     Dosage: 5 MG, QD
     Dates: start: 20110418
  14. AERIUS [Concomitant]
     Indication: PRURITUS
     Dates: start: 20110418
  15. ALDACTONE [Concomitant]
     Indication: HYPERTENSION
     Dosage: 25 MG, QD
     Route: 065
     Dates: start: 20080417
  16. DOLIPRANE [Concomitant]
     Indication: INFLUENZA
     Route: 065
     Dates: start: 20110411, end: 20111219
  17. DIPROSALIC [Concomitant]
     Indication: RASH
     Dosage: 1 DF, QD
     Route: 065
     Dates: start: 20110426
  18. DEXERYL [Concomitant]
     Indication: DRY SKIN
     Dosage: 1 DF, QD
     Route: 065
     Dates: start: 20110228
  19. MODOPAR [Concomitant]
     Indication: PARKINSONISM
     Dosage: 125 MG, TID
     Route: 065
     Dates: start: 20111031
  20. MOTILIUM [Concomitant]
     Indication: NAUSEA
     Dosage: DOSAGE FORM: UNSPECIFIED
     Route: 065
     Dates: start: 20111027
  21. LEXOMIL [Concomitant]
     Indication: ANXIETY
     Dosage: 3 MG, QD
     Route: 065
     Dates: start: 20111027
  22. STILNOX [Concomitant]
     Indication: INSOMNIA
     Dosage: 10 MG, QD
     Route: 065
     Dates: start: 20111027

REACTIONS (7)
  - Metastatic neoplasm [Fatal]
  - Hypercalcaemia of malignancy [Fatal]
  - Pulmonary embolism [Fatal]
  - Hemiparesis [Recovered/Resolved]
  - VIIth nerve paralysis [Recovered/Resolved]
  - Dementia Alzheimer^s type [Not Recovered/Not Resolved]
  - Dementia [Not Recovered/Not Resolved]
